FAERS Safety Report 9649991 (Version 1)
Quarter: 2013Q4

REPORT INFORMATION
  Report Type: Spontaneous
  Country: US (occurrence: US)
  Receive Date: 20131028
  Receipt Date: 20131028
  Transmission Date: 20140711
  Serious: Yes (Other)
  Sender: FDA-Public Use
  Company Number: US-NAPPMUNDI-USA-2012-0095118

PATIENT
  Age: 23 Year
  Sex: Male

DRUGS (6)
  1. OXYCONTIN (NDA 22-272) [Suspect]
     Indication: DRUG ABUSE
     Dosage: UNK, SEE TEXT
  2. COCAINE [Suspect]
     Indication: DRUG ABUSE
     Dosage: UNK, SEE TEXT
  3. HEROIN [Suspect]
     Indication: DRUG ABUSE
     Dosage: UNK, SEE TEXT
  4. KETAMINE [Suspect]
     Indication: DRUG ABUSE
     Dosage: UNK, SEE TEXT
  5. PHENCYCLIDINE [Suspect]
     Indication: DRUG ABUSE
     Dosage: UNK UNK, SEE TEXT
  6. METHYLENEDIOXYMETHAMPHETAMINE [Suspect]
     Indication: DRUG ABUSE
     Dosage: UNK UNK, SEE TEXT

REACTIONS (1)
  - Substance abuse [Unknown]
